FAERS Safety Report 9408167 (Version 1)
Quarter: 2013Q3

REPORT INFORMATION
  Report Type: Report from Study
  Country: MW (occurrence: MW)
  Receive Date: 20130718
  Receipt Date: 20130718
  Transmission Date: 20140515
  Serious: Yes (Other)
  Sender: FDA-Public Use
  Company Number: MW-B.I. PHARMACEUTICALS,INC./RIDGEFIELD-2013-BI-20874GD

PATIENT
  Sex: 0

DRUGS (3)
  1. VIRAMUNE [Suspect]
     Indication: HIV INFECTION
  2. ANTIRETROVIRALS [Suspect]
     Indication: HIV INFECTION
  3. DIHYDROARTEMISININ/PEPERAQUINE [Suspect]

REACTIONS (1)
  - Cerebrovascular accident [Recovered/Resolved]
